FAERS Safety Report 15206031 (Version 1)
Quarter: 2018Q3

REPORT INFORMATION
  Report Type: Report from Study
  Country: DE (occurrence: DE)
  Receive Date: 20180727
  Receipt Date: 20180727
  Transmission Date: 20181010
  Serious: Yes (Hospitalization)
  Sender: FDA-Public Use
  Company Number: DE-TEVA-2018-DE-930243

PATIENT
  Age: 71 Year
  Sex: Male
  Weight: 84 kg

DRUGS (3)
  1. CARBOPLATIN. [Suspect]
     Active Substance: CARBOPLATIN
     Indication: LUNG NEOPLASM MALIGNANT
     Dosage: AUC 2, DAY 1, 8, 15, FOLLOWED BY 2 WEEKS BREAK
     Route: 065
     Dates: start: 20150401, end: 20150617
  2. NAB?PACLITAXEL [Suspect]
     Active Substance: PACLITAXEL
     Indication: LUNG NEOPLASM MALIGNANT
     Dosage: DAY 1, 8, 15, FOLLOWED BY 2 WEEKS BREAK
     Route: 065
     Dates: start: 20150401, end: 20150617
  3. AVASTIN [Suspect]
     Active Substance: BEVACIZUMAB
     Indication: LUNG NEOPLASM MALIGNANT
     Dosage: DAILY DOSE: 7.5 MG/KG MILLIGRAM(S)/KILOGRAM EVERY 3 WEEKS
     Route: 065
     Dates: start: 20150401, end: 20150617

REACTIONS (1)
  - Perirectal abscess [Recovered/Resolved]

NARRATIVE: CASE EVENT DATE: 20150624
